FAERS Safety Report 7271353-4 (Version None)
Quarter: 2011Q1

REPORT INFORMATION
  Report Type: 
  Country: None (occurrence: None)
  Receive Date: 20110203
  Receipt Date: 20110120
  Transmission Date: 20110831
  Serious: No
  Sender: FDA-Public Use
  Company Number: US-BIOGENIDEC-2011BI003249

PATIENT
  Age: 58 Year
  Sex: Female

DRUGS (3)
  1. TYSABRI [Suspect]
     Indication: MULTIPLE SCLEROSIS
     Route: 042
     Dates: start: 20100825
  2. TYSABRI [Suspect]
     Route: 042
     Dates: start: 20090217, end: 20100112
  3. TYSABRI [Suspect]
     Route: 042
     Dates: start: 20080328, end: 20080912

REACTIONS (1)
  - BRONCHITIS [None]
